FAERS Safety Report 7059514-0 (Version None)
Quarter: 2010Q4

REPORT INFORMATION
  Report Type: 
  Country: None (occurrence: None)
  Receive Date: 20101025
  Receipt Date: 20101011
  Transmission Date: 20110411
  Serious: Yes (Death, Hospitalization)
  Sender: FDA-Public Use
  Company Number: GB-RANBAXY-2009RR-30283

PATIENT
  Age: 41 Year
  Sex: Male

DRUGS (19)
  1. GABAPENTIN [Suspect]
     Indication: PRODUCT USED FOR UNKNOWN INDICATION
     Dosage: UNK
     Route: 048
     Dates: start: 20060125
  2. FENTANYL [Suspect]
     Indication: PRODUCT USED FOR UNKNOWN INDICATION
     Dosage: UNK
     Route: 062
     Dates: start: 20060129
  3. MORPHINE SULFATE [Suspect]
     Indication: PRODUCT USED FOR UNKNOWN INDICATION
     Dosage: UNK
     Route: 058
     Dates: start: 20060124, end: 20060129
  4. ORAMORPH SR [Suspect]
     Indication: PRODUCT USED FOR UNKNOWN INDICATION
     Dosage: UNK
     Route: 048
     Dates: start: 20060118, end: 20060124
  5. SUTENT [Suspect]
     Indication: GASTROINTESTINAL STROMAL TUMOUR
     Dosage: 37.5 MG, QD
     Route: 048
     Dates: start: 20051221, end: 20060606
  6. AMITRIPTYLINE HCL [Concomitant]
     Dosage: UNK
     Route: 065
     Dates: start: 20060116, end: 20060124
  7. BISACODYL [Concomitant]
     Dosage: UNK
     Route: 065
     Dates: start: 20060125, end: 20060128
  8. CO-DANTHRAMER [Concomitant]
     Dosage: UNK
     Route: 065
     Dates: start: 20060124
  9. DEXAMETHASONE [Concomitant]
     Dosage: UNK
     Dates: start: 20060127, end: 20060201
  10. DOCUSATE [Concomitant]
     Dosage: UNK
     Route: 065
     Dates: start: 20051219
  11. GLYCEROL [Concomitant]
     Dosage: UNK
     Route: 065
     Dates: start: 20060125, end: 20060128
  12. LANSOPRAZOLE [Concomitant]
     Dosage: UNK
     Route: 065
     Dates: start: 20060118
  13. LEVOMEPROMAZINE [Concomitant]
     Dosage: UNK
     Route: 065
     Dates: start: 20060125
  14. METOCLOPRAMIDE [Concomitant]
     Dosage: UNK
     Route: 065
     Dates: start: 20060124, end: 20060131
  15. MICROLAX [Concomitant]
     Dosage: UNK
     Route: 065
     Dates: start: 20060126
  16. CREON [Concomitant]
     Dosage: UNK
     Route: 065
     Dates: start: 20060101
  17. ZOPICLONE [Concomitant]
     Dosage: UNK
     Dates: start: 20010401
  18. BUSCOPAN [Concomitant]
     Dosage: UNK
     Dates: start: 20060131
  19. DORBANEX [Concomitant]

REACTIONS (2)
  - CONSTIPATION [None]
  - DEATH [None]
